FAERS Safety Report 10671632 (Version 1)
Quarter: 2014Q4

REPORT INFORMATION
  Report Type: Spontaneous
  Country: US (occurrence: US)
  Receive Date: 20141223
  Receipt Date: 20141223
  Transmission Date: 20150529
  Serious: Yes (Other)
  Sender: FDA-Public Use
  Company Number: US-GLAXOSMITHKLINE INC.-US2014GSK040068

PATIENT
  Sex: Female

DRUGS (1)
  1. LAMOTRIGINE TABLET [Suspect]
     Active Substance: LAMOTRIGINE
     Indication: SEIZURE
     Dosage: 100MG IN AM, 200MG IN PM
     Route: 065
     Dates: start: 20140701

REACTIONS (4)
  - Feeling abnormal [Unknown]
  - Drug dose omission [Recovered/Resolved]
  - Hypoaesthesia [Not Recovered/Not Resolved]
  - Drug withdrawal convulsions [Unknown]
